FAERS Safety Report 7931404-8 (Version None)
Quarter: 2011Q4

REPORT INFORMATION
  Report Type: 
  Country: None (occurrence: None)
  Receive Date: 20111121
  Receipt Date: 20111109
  Transmission Date: 20120403
  Serious: Yes (Death)
  Sender: FDA-Public Use
  Company Number: DK-PFIZER INC-2011256685

PATIENT
  Age: 69 Year
  Sex: Female

DRUGS (10)
  1. ZOPICLONE [Concomitant]
  2. CORDARONE [Suspect]
     Indication: ATRIAL FIBRILLATION
     Dosage: 200 MG, DAILY
     Route: 048
  3. ATORVASTATIN [Concomitant]
  4. CIPROFLOXACIN [Concomitant]
  5. FEXOFENADINE HCL [Concomitant]
  6. METOCLOPRAMIDE [Suspect]
     Indication: PRODUCT USED FOR UNKNOWN INDICATION
  7. IBUPROFEN [Concomitant]
  8. PAMOL [Concomitant]
  9. CODEINE [Concomitant]
  10. WARFARIN [Concomitant]

REACTIONS (2)
  - ARRHYTHMIA [None]
  - TOXICITY TO VARIOUS AGENTS [None]
